FAERS Safety Report 10463676 (Version 1)
Quarter: 2014Q3

REPORT INFORMATION
  Report Type: Spontaneous
  Country: US (occurrence: None)
  Receive Date: 20140918
  Receipt Date: 20140918
  Transmission Date: 20150326
  Serious: No
  Sender: FDA-Public Use
  Company Number: None

PATIENT
  Age: 51 Year
  Sex: Male

DRUGS (1)
  1. ZYKADIA [Suspect]
     Active Substance: CERITINIB
     Indication: LUNG NEOPLASM MALIGNANT
     Dosage: 5 CAPS
     Route: 048
     Dates: start: 20140822, end: 20140828

REACTIONS (3)
  - Incorrect dose administered [None]
  - Convulsion [None]
  - Therapy cessation [None]

NARRATIVE: CASE EVENT DATE: 20140828
